FAERS Safety Report 21290109 (Version 1)
Quarter: 2022Q3

REPORT INFORMATION
  Report Type: Spontaneous
  Country: US (occurrence: None)
  Receive Date: 20220902
  Receipt Date: 20220902
  Transmission Date: 20221027
  Serious: Yes (Other)
  Sender: FDA-Public Use
  Company Number: None

PATIENT
  Age: 58 Year
  Sex: Female
  Weight: 68 kg

DRUGS (18)
  1. STELARA [Suspect]
     Active Substance: USTEKINUMAB
     Indication: Psoriasis
     Route: 058
     Dates: start: 20220819
  2. AMLODIPINE BESYLATE [Concomitant]
     Active Substance: AMLODIPINE BESYLATE
  3. ASPIRIN [Concomitant]
     Active Substance: ASPIRIN
  4. CEVIMELINE [Concomitant]
     Active Substance: CEVIMELINE
  5. collagen ultra capsule [Concomitant]
  6. DARIFENACIN [Concomitant]
     Active Substance: DARIFENACIN
  7. GABAPENTIN [Concomitant]
     Active Substance: GABAPENTIN
  8. hair, skin, nails multivitamin [Concomitant]
  9. HYDROXYCHLOROQUINE [Concomitant]
     Active Substance: HYDROXYCHLOROQUINE
  10. IBUPROFEN [Concomitant]
     Active Substance: IBUPROFEN
  11. LIPITOR [Concomitant]
     Active Substance: ATORVASTATIN CALCIUM
  12. MIRALAX [Concomitant]
     Active Substance: POLYETHYLENE GLYCOL 3350
  13. PROTONIX [Concomitant]
     Active Substance: PANTOPRAZOLE SODIUM
  14. RIBOFLAVIN [Concomitant]
     Active Substance: RIBOFLAVIN
  15. RISPERIDONE [Concomitant]
     Active Substance: RISPERIDONE
  16. TOPIRAMATE [Concomitant]
     Active Substance: TOPIRAMATE
  17. TRAZODONE [Concomitant]
     Active Substance: TRAZODONE HYDROCHLORIDE
  18. VITAMIN C [Concomitant]
     Active Substance: ASCORBIC ACID

REACTIONS (4)
  - Chest pain [None]
  - Oropharyngeal pain [None]
  - Headache [None]
  - Cough [None]

NARRATIVE: CASE EVENT DATE: 20220820
